FAERS Safety Report 8594684-4 (Version None)
Quarter: 2012Q3

REPORT INFORMATION
  Report Type: 
  Country: None (occurrence: None)
  Receive Date: 20120815
  Receipt Date: 20120809
  Transmission Date: 20120928
  Serious: Yes (Hospitalization)
  Sender: FDA-Public Use
  Company Number: GB-VERTEX PHARMACEUTICALS INC.-AE-2012-011192

PATIENT
  Sex: Male
  Weight: 33.505 kg

DRUGS (15)
  1. KALYDECO [Suspect]
     Indication: CYSTIC FIBROSIS
     Dates: start: 20101129, end: 20120801
  2. DICLOFENAC [Concomitant]
     Indication: RENAL COLIC
     Route: 048
     Dates: start: 20100701
  3. CEFTAZIDIME [Concomitant]
     Indication: INFECTIVE PULMONARY EXACERBATION OF CYSTIC FIBROSIS
     Dates: start: 20120731
  4. VITAMIN K TAB [Concomitant]
     Indication: MALABSORPTION
     Route: 048
     Dates: start: 20080101
  5. ADCAL-D3 [Concomitant]
     Route: 048
     Dates: start: 20110413
  6. PULMOZYME [Concomitant]
     Route: 048
     Dates: start: 20090623
  7. OMEPRAZOLE [Concomitant]
     Indication: DYSPEPSIA
     Route: 048
     Dates: start: 20111025
  8. CIPROFLOXACIN [Concomitant]
     Route: 048
     Dates: start: 20120727, end: 20120731
  9. DOXYCYCLINE HCL [Concomitant]
     Indication: UPPER RESPIRATORY TRACT INFECTION
     Route: 048
     Dates: start: 20101208
  10. VITAMIN E [Concomitant]
     Indication: MALABSORPTION
     Route: 048
     Dates: start: 19980818
  11. MORPHINE [Concomitant]
     Indication: RENAL COLIC
     Dates: start: 20100701
  12. CREON [Concomitant]
     Indication: MALABSORPTION
     Dates: start: 20080901
  13. VITAMIN A+D [Concomitant]
     Indication: MALABSORPTION
     Dates: start: 20120526
  14. TOBRAMYCIN [Concomitant]
     Indication: INFECTIVE PULMONARY EXACERBATION OF CYSTIC FIBROSIS
     Dates: start: 20120731
  15. FLUCLOXACILLIN [Concomitant]

REACTIONS (2)
  - INFECTIVE PULMONARY EXACERBATION OF CYSTIC FIBROSIS [None]
  - LIVER FUNCTION TEST ABNORMAL [None]
